FAERS Safety Report 11518341 (Version 2)
Quarter: 2015Q3

REPORT INFORMATION
  Report Type: Spontaneous
  Country: GB (occurrence: GB)
  Receive Date: 20150917
  Receipt Date: 20150924
  Transmission Date: 20151125
  Serious: Yes (Hospitalization)
  Sender: FDA-Public Use
  Company Number: GB-PFIZER INC-2015308346

PATIENT
  Age: 36 Year
  Sex: Male

DRUGS (1)
  1. VIAGRA [Suspect]
     Active Substance: SILDENAFIL CITRATE
     Dosage: 35 DF, SINGLE
     Dates: start: 20150831

REACTIONS (10)
  - Intentional overdose [Recovered/Resolved]
  - Hallucination [Recovered/Resolved]
  - Painful erection [Recovered/Resolved]
  - Malaise [Recovered/Resolved]
  - Abdominal pain upper [Recovered/Resolved]
  - Headache [Recovered/Resolved]
  - Chloropsia [Recovered/Resolved]
  - Erection increased [Recovered/Resolved]
  - Spontaneous penile erection [Recovered/Resolved]
  - Dizziness [Recovered/Resolved]

NARRATIVE: CASE EVENT DATE: 20150831
